FAERS Safety Report 10344916 (Version 1)
Quarter: 2014Q3

REPORT INFORMATION
  Report Type: Spontaneous
  Country: GB (occurrence: None)
  Receive Date: 20140723
  Receipt Date: 20140723
  Transmission Date: 20150326
  Serious: Yes (Death)
  Sender: FDA-Public Use
  Company Number: 2441935

PATIENT
  Age: 70 Year
  Sex: Male

DRUGS (3)
  1. FLUDARABINE PHOSPHATE. [Suspect]
     Active Substance: FLUDARABINE PHOSPHATE
     Dosage: NOT REPORTED, CYCLICAL, UNKNOWN
     Dates: start: 2006
  2. FLUDARABINE PHOSPHATE. [Suspect]
     Active Substance: FLUDARABINE PHOSPHATE
     Indication: CHRONIC LYMPHOCYTIC LEUKAEMIA
     Dosage: NOT REPORTED, CYCLICAL, UNKNOWN
     Dates: start: 2006
  3. CYCLOPHOSPHAMIDE. [Suspect]
     Active Substance: CYCLOPHOSPHAMIDE
     Indication: CHRONIC LYMPHOCYTIC LEUKAEMIA
     Dates: start: 2009

REACTIONS (3)
  - Histiocytosis haematophagic [None]
  - Clostridium difficile colitis [None]
  - Splenomegaly [None]
